FAERS Safety Report 11432283 (Version 1)
Quarter: 2015Q3

REPORT INFORMATION
  Report Type: Spontaneous
  Country: US (occurrence: US)
  Receive Date: 20150828
  Receipt Date: 20150828
  Transmission Date: 20151125
  Serious: No
  Sender: FDA-Public Use
  Company Number: US-SA-2015SA089244

PATIENT
  Age: 50 Year
  Sex: Female
  Weight: 72.57 kg

DRUGS (4)
  1. FINACEA [Concomitant]
     Active Substance: AZELAIC ACID
     Dosage: 15 %GEL
     Dates: start: 20150305
  2. CALCIUM CITRATE [Concomitant]
     Active Substance: CALCIUM CITRATE
     Route: 065
     Dates: start: 20150304
  3. ORSYTHIA [Concomitant]
     Active Substance: ETHINYL ESTRADIOL\LEVONORGESTREL
     Dosage: 0.1-0.02 TABLET
     Dates: start: 20150304
  4. CERDELGA [Suspect]
     Active Substance: ELIGLUSTAT
     Indication: LIPIDOSIS
     Route: 065
     Dates: start: 20150305

REACTIONS (4)
  - Cough [Not Recovered/Not Resolved]
  - Constipation [Not Recovered/Not Resolved]
  - Vomiting [Not Recovered/Not Resolved]
  - Nausea [Not Recovered/Not Resolved]
